FAERS Safety Report 4683895-6 (Version None)
Quarter: 2005Q2

REPORT INFORMATION
  Report Type: 
  Country: None (occurrence: None)
  Receive Date: 20050602
  Receipt Date: 20050421
  Transmission Date: 20051028
  Serious: No
  Sender: FDA-Public Use
  Company Number: 200511060GDS

PATIENT
  Age: 37 Year
  Sex: Female

DRUGS (3)
  1. VARDENAFIL [Suspect]
     Indication: ANORGASMIA
     Dosage: 10 MG, PRN, ORAL
     Route: 048
  2. SERTRALINE HCL [Concomitant]
  3. SILDENAFIL [Concomitant]

REACTIONS (1)
  - ANORGASMIA [None]
